FAERS Safety Report 6409580-8 (Version None)
Quarter: 2009Q4

REPORT INFORMATION
  Report Type: 
  Country: None (occurrence: None)
  Receive Date: 20091022
  Receipt Date: 20091013
  Transmission Date: 20100525
  Serious: Yes (Other)
  Sender: FDA-Public Use
  Company Number: US-BAYER-200936172NA

PATIENT
  Age: 60 Year
  Sex: Female
  Weight: 68 kg

DRUGS (2)
  1. ULTRAVIST (PHARMACY BULK) [Suspect]
     Indication: COMPUTERISED TOMOGRAM ABDOMEN
     Dosage: TOTAL DAILY DOSE: 80 ML
     Route: 042
  2. ORAL CONTAST [Concomitant]
     Indication: COMPUTERISED TOMOGRAM ABDOMEN

REACTIONS (3)
  - ERYTHEMA [None]
  - PYREXIA [None]
  - URTICARIA [None]
